FAERS Safety Report 6644977-2 (Version None)
Quarter: 2010Q1

REPORT INFORMATION
  Report Type: 
  Country: None (occurrence: None)
  Receive Date: 20100322
  Receipt Date: 20100310
  Transmission Date: 20100710
  Serious: Yes (Other)
  Sender: FDA-Public Use
  Company Number: PHHY2010CH14869

PATIENT
  Age: 37 Year
  Sex: Female

DRUGS (4)
  1. SANDIMMUNE [Suspect]
     Indication: RENAL TRANSPLANT
     Dosage: 225 MG/DAY
     Route: 048
     Dates: start: 20080701
  2. AZATHIOPRINE [Suspect]
     Indication: RENAL TRANSPLANT
     Dosage: 75 MG/DAY
     Dates: start: 20050101
  3. PREDNISONE TAB [Suspect]
     Indication: RENAL TRANSPLANT
     Dosage: 7.5 MG/DAY
     Dates: start: 20050101
  4. EPREX [Concomitant]
     Indication: RENAL TRANSPLANT
     Dosage: 5000 IU/2 WEEKS
     Dates: start: 20050101

REACTIONS (2)
  - ABORTION SPONTANEOUS [None]
  - DRUG EXPOSURE DURING PREGNANCY [None]
